FAERS Safety Report 10921225 (Version 1)
Quarter: 2015Q1

REPORT INFORMATION
  Report Type: Spontaneous
  Country: FR (occurrence: FR)
  Receive Date: 20150317
  Receipt Date: 20150317
  Transmission Date: 20150721
  Serious: Yes (Hospitalization)
  Sender: FDA-Public Use
  Company Number: FR-SA-2015SA030484

PATIENT
  Age: 82 Year
  Sex: Female

DRUGS (9)
  1. PREVISCAN [Suspect]
     Active Substance: FLUINDIONE
     Dosage: 20   MG.
     Route: 048
     Dates: start: 20150128, end: 20150204
  2. LOVENOX [Suspect]
     Active Substance: ENOXAPARIN SODIUM
     Dosage: 0.6 ML SOLUTION FOR INJECTION (SC) IN PRE-FILLED SYRINGE.
     Route: 058
     Dates: start: 20141219, end: 20150204
  3. RIVOTRIL [Concomitant]
     Active Substance: CLONAZEPAM
     Dosage: FROM: LONG TERM
     Route: 048
     Dates: end: 20150209
  4. TAHOR [Concomitant]
     Active Substance: ATORVASTATIN CALCIUM
     Dosage: 10 MG.
     Route: 048
  5. CONTRAMAL [Concomitant]
     Active Substance: TRAMADOL HYDROCHLORIDE
     Route: 048
     Dates: start: 201501
  6. COTAREG [Concomitant]
     Active Substance: HYDROCHLOROTHIAZIDE\VALSARTAN
     Dosage: FROM: LONG TERM
     Route: 048
  7. DAFALGAN [Concomitant]
     Active Substance: ACETAMINOPHEN
     Dosage: LONG TERM?WHEN REQUIRED
     Route: 048
  8. TOPALGIC [Concomitant]
     Active Substance: TRAMADOL
     Dosage: TOPALGIC L.P. 150 MG, PROLONGED-RELEASE TABLET
     Route: 048
     Dates: start: 201501
  9. EUPANTOL [Concomitant]
     Active Substance: PANTOPRAZOLE SODIUM
     Dosage: EUPANTOL 40 MG.
     Route: 048
     Dates: start: 201501

REACTIONS (3)
  - Haematoma [Recovered/Resolved]
  - Anaemia [Recovering/Resolving]
  - International normalised ratio increased [Recovered/Resolved]

NARRATIVE: CASE EVENT DATE: 20150203
